FAERS Safety Report 14985957 (Version 2)
Quarter: 2018Q2

REPORT INFORMATION
  Report Type: Spontaneous
  Country: FR (occurrence: FR)
  Receive Date: 20180607
  Receipt Date: 20180614
  Transmission Date: 20180711
  Serious: Yes (Death, Hospitalization)
  Sender: FDA-Public Use
  Company Number: FR-MYLANLABS-2018M1038167

PATIENT
  Age: 28 Year
  Sex: Male

DRUGS (1)
  1. BACLOFEN. [Suspect]
     Active Substance: BACLOFEN
     Indication: PRODUCT USED FOR UNKNOWN INDICATION
     Dosage: 40 TABLETS OF BACLOFEN 10 MG
     Route: 048

REACTIONS (5)
  - Overdose [Fatal]
  - Brain oedema [Fatal]
  - Loss of consciousness [Unknown]
  - Visceral congestion [Fatal]
  - Circulatory collapse [Fatal]
